FAERS Safety Report 5783685-7 (Version None)
Quarter: 2008Q2

REPORT INFORMATION
  Report Type: 
  Country: None (occurrence: None)
  Receive Date: 20080605
  Receipt Date: 20080324
  Transmission Date: 20081010
  Serious: No
  Sender: FDA-Public Use
  Company Number: A0716967A

PATIENT
  Age: 44 Year
  Sex: Female

DRUGS (1)
  1. ALLI [Suspect]

REACTIONS (5)
  - CHAPPED LIPS [None]
  - CHEILITIS [None]
  - HYPERSENSITIVITY [None]
  - LIP PAIN [None]
  - LIP SWELLING [None]
